FAERS Safety Report 13708358 (Version 2)
Quarter: 2017Q3

REPORT INFORMATION
  Report Type: Spontaneous
  Country: FR (occurrence: FR)
  Receive Date: 20170630
  Receipt Date: 20170712
  Transmission Date: 20171127
  Serious: Yes (Hospitalization)
  Sender: FDA-Public Use
  Company Number: FR-PFIZER INC-2017278339

PATIENT
  Age: 78 Year
  Sex: Male
  Weight: 55 kg

DRUGS (18)
  1. LERCANIDIPINE [Concomitant]
     Active Substance: LERCANIDIPINE
     Dosage: 10 MG, DAILY
  2. ESOMEPRAZOLE [Concomitant]
     Active Substance: ESOMEPRAZOLE
     Dosage: 40 MG, DAILY
  3. VENTOLINE [Concomitant]
     Active Substance: ALBUTEROL
  4. CRESTOR [Concomitant]
     Active Substance: ROSUVASTATIN CALCIUM
     Dosage: 5 MG, DAILY
  5. DELICAL BOISSON FRUITEE [Concomitant]
     Dosage: 1 DF, DAILY
  6. IMOVANE [Concomitant]
     Active Substance: ZOPICLONE
     Dosage: 0.5 UNK, AS NEEDED
  7. SERETIDE [Concomitant]
     Active Substance: FLUTICASONE PROPIONATE\SALMETEROL XINAFOATE
  8. FOLIC ACID. [Concomitant]
     Active Substance: FOLIC ACID
     Dosage: 5 MG, 2X/WEEK
  9. PARACETAMOL [Concomitant]
     Active Substance: ACETAMINOPHEN
     Dosage: 3 G, DAILY
  10. METHOTREXATE SODIUM. [Suspect]
     Active Substance: METHOTREXATE SODIUM
     Indication: RHEUMATOID ARTHRITIS
     Dosage: 15 MG, WEEKLY
     Route: 048
     Dates: start: 2002, end: 20170601
  11. SPRYCEL [Suspect]
     Active Substance: DASATINIB
     Indication: CHRONIC MYELOID LEUKAEMIA
     Dosage: 40 MG, DAILY
     Route: 048
     Dates: start: 201704, end: 20170601
  12. SOLUPRED [Concomitant]
     Active Substance: PREDNISOLONE
     Dosage: 5 MG, DAILY
  13. TAMSULOSIN [Concomitant]
     Active Substance: TAMSULOSIN
     Dosage: 0.4 MG, DAILY
  14. NEBIVOLOL. [Concomitant]
     Active Substance: NEBIVOLOL
     Dosage: 2.5 MG, DAILY
  15. CALTRATE WITH VITAMIN D [Concomitant]
     Active Substance: CALCIUM CARBONATE\CHOLECALCIFEROL
     Dosage: 2 DF, DAILY
  16. EPOETIN ALFA [Concomitant]
     Active Substance: ERYTHROPOIETIN
     Indication: ANAEMIA
  17. PROLIA [Concomitant]
     Active Substance: DENOSUMAB
     Dosage: 1 DF, EVERY 6 MONTHS
  18. ENBREL [Concomitant]
     Active Substance: ETANERCEPT

REACTIONS (2)
  - Pancytopenia [Recovered/Resolved]
  - General physical health deterioration [Recovered/Resolved]

NARRATIVE: CASE EVENT DATE: 20170601
